FAERS Safety Report 20545938 (Version 1)
Quarter: 2022Q1

REPORT INFORMATION
  Report Type: Spontaneous
  Country: US (occurrence: None)
  Receive Date: 20220303
  Receipt Date: 20220303
  Transmission Date: 20220424
  Serious: Yes (Death, Hospitalization)
  Sender: FDA-Public Use
  Company Number: None

PATIENT
  Sex: Male
  Weight: 15.6 kg

DRUGS (6)
  1. CYTARABINE [Suspect]
     Active Substance: CYTARABINE
     Indication: Respiratory failure
     Dates: end: 20211008
  2. DAUNORUBICIN [Suspect]
     Active Substance: DAUNORUBICIN
     Dates: end: 20211008
  3. DEXAMETHASONE [Suspect]
     Active Substance: DEXAMETHASONE
     Dates: end: 20211015
  4. METHOTREXATE [Suspect]
     Active Substance: METHOTREXATE
     Dates: end: 20211014
  5. ONCASPAR [Suspect]
     Active Substance: PEGASPARGASE
  6. VINCRISTINE SULFATE [Suspect]
     Active Substance: VINCRISTINE SULFATE
     Dates: end: 20211008

REACTIONS (9)
  - Mental status changes [None]
  - Bradycardia [None]
  - Cardiac arrest [None]
  - Respiratory arrest [None]
  - Spinal cord ischaemia [None]
  - Haemorrhagic infarction [None]
  - Motor dysfunction [None]
  - Sensory loss [None]
  - Circulatory collapse [None]

NARRATIVE: CASE EVENT DATE: 20211022
